FAERS Safety Report 5156885-7 (Version None)
Quarter: 2006Q3

REPORT INFORMATION
  Report Type: 
  Country: None (occurrence: None)
  Receive Date: 20060918
  Receipt Date: 20060609
  Transmission Date: 20061208
  Serious: Yes (Other)
  Sender: FDA-Public Use
  Company Number: US-JNJFOC-20060602266

PATIENT
  Age: 40 Year
  Sex: Female
  Weight: 111.1313 kg

DRUGS (8)
  1. TOPAMAX [Suspect]
     Indication: MIGRAINE PROPHYLAXIS
     Dosage: 200 MG, 2 IN 1 DAY, ORAL
     Route: 048
  2. ULTRAM [Concomitant]
  3. HYDROCODONE [Concomitant]
  4. TRICOR [Concomitant]
  5. VERAPAMIL [Concomitant]
  6. NEURONTIN [Concomitant]
  7. SOMA [Concomitant]
  8. REMICADE (INFLIXIMAB, RECOMBINANT OPERATOR) [Concomitant]

REACTIONS (2)
  - SKIN INFECTION [None]
  - WEIGHT INCREASED [None]
